FAERS Safety Report 25255651 (Version 1)
Quarter: 2025Q2

REPORT INFORMATION
  Report Type: Spontaneous
  Country: GB (occurrence: GB)
  Receive Date: 20250430
  Receipt Date: 20250430
  Transmission Date: 20250716
  Serious: Yes (Other)
  Sender: B BRAUN
  Company Number: GB-B.Braun Medical Inc.-2175845

PATIENT
  Sex: Female

DRUGS (6)
  1. ACETAMINOPHEN [Suspect]
     Active Substance: ACETAMINOPHEN
  2. BISOPROLOL. [Concomitant]
  3. SACUBITRIL [Concomitant]
     Active Substance: SACUBITRIL
  4. RIVAROXABAN [Concomitant]
     Active Substance: RIVAROXABAN
  5. EPLERENONE [Concomitant]
     Active Substance: EPLERENONE
  6. DAPAGLIFLOZIN [Concomitant]
     Active Substance: DAPAGLIFLOZIN

REACTIONS (2)
  - Arthritis reactive [Recovered/Resolved]
  - Rash [Recovered/Resolved]
